FAERS Safety Report 7221410-3 (Version None)
Quarter: 2011Q1

REPORT INFORMATION
  Report Type: 
  Country: None (occurrence: None)
  Receive Date: 20110103
  Receipt Date: 20101222
  Transmission Date: 20110831
  Serious: Yes (Hospitalization)
  Sender: FDA-Public Use
  Company Number: 2010JP006342

PATIENT
  Age: 74 Year
  Sex: Male
  Weight: 54.3 kg

DRUGS (4)
  1. OMEPRAZOLE [Concomitant]
  2. PRIMPERAN (METCLOPRAMIDE HYDROCHLORIDE) INJECTION [Concomitant]
  3. FUNGUARD (MICAFUNGIN) INJECTION [Suspect]
     Indication: OESOPHAGEAL CANDIDIASIS
     Dosage: 75 MG, UID/QD, IV DRIP
     Route: 041
     Dates: start: 20100929, end: 20101004
  4. MINOCYCLINE (MINOCYCLINE) INJECTION [Suspect]
     Indication: ENTERITIS INFECTIOUS
     Dosage: 50 MG, BID, IV DRIP
     Route: 041
     Dates: start: 20100925, end: 20101006

REACTIONS (6)
  - LIVER DISORDER [None]
  - BLOOD ALKALINE PHOSPHATASE INCREASED [None]
  - GAMMA-GLUTAMYLTRANSFERASE INCREASED [None]
  - WHITE BLOOD CELL COUNT INCREASED [None]
  - ASPARTATE AMINOTRANSFERASE INCREASED [None]
  - CONDITION AGGRAVATED [None]
